FAERS Safety Report 9383039 (Version 1)
Quarter: 2013Q3

REPORT INFORMATION
  Report Type: Spontaneous
  Country: US (occurrence: US)
  Receive Date: 20130704
  Receipt Date: 20130704
  Transmission Date: 20140515
  Serious: No
  Sender: FDA-Public Use
  Company Number: US-009507513-1307USA001508

PATIENT
  Age: 23 Year
  Sex: Female

DRUGS (3)
  1. VICTRELIS [Suspect]
     Indication: HEPATITIS C
     Dosage: UNK
     Dates: start: 20130610
  2. PEG-INTRON [Suspect]
     Indication: HEPATITIS C
     Dosage: REDIPEN
     Dates: start: 20130506
  3. REBETOL [Suspect]
     Indication: HEPATITIS C
     Dosage: UNKNOWN
     Dates: start: 20130506

REACTIONS (1)
  - Vomiting [Unknown]
